FAERS Safety Report 23851939 (Version 1)
Quarter: 2024Q2

REPORT INFORMATION
  Report Type: Report from Study
  Country: US (occurrence: US)
  Receive Date: 20240514
  Receipt Date: 20240514
  Transmission Date: 20240716
  Serious: Yes (Other)
  Sender: FDA-Public Use
  Company Number: US-TAKEDA-2024TUS038118

PATIENT
  Age: 80 Year
  Sex: Male
  Weight: 61.22 kg

DRUGS (2)
  1. HUMAN IMMUNOGLOBULIN G\HYALURONIDASE RECOMBINANT HUMAN [Suspect]
     Active Substance: HUMAN IMMUNOGLOBULIN G\HYALURONIDASE (HUMAN RECOMBINANT)
     Indication: Chronic inflammatory demyelinating polyradiculoneuropathy
     Dosage: 30 MILLIGRAM, 1/WEEK
     Route: 065
     Dates: start: 20240409
  2. HUMAN IMMUNOGLOBULIN G\HYALURONIDASE RECOMBINANT HUMAN [Suspect]
     Active Substance: HUMAN IMMUNOGLOBULIN G\HYALURONIDASE (HUMAN RECOMBINANT)
     Dosage: 60 MILLIGRAM, Q2WEEKS
     Route: 058

REACTIONS (8)
  - Muscular weakness [Unknown]
  - Infusion related reaction [Unknown]
  - Abdominal distension [Recovered/Resolved]
  - Drug ineffective [Unknown]
  - Muscle strength abnormal [Unknown]
  - Asthenia [Unknown]
  - Device difficult to use [Unknown]
  - Product preparation issue [Unknown]

NARRATIVE: CASE EVENT DATE: 20240409
